FAERS Safety Report 25335350 (Version 1)
Quarter: 2025Q2

REPORT INFORMATION
  Report Type: Spontaneous
  Country: BR (occurrence: BR)
  Receive Date: 20250520
  Receipt Date: 20250520
  Transmission Date: 20250717
  Serious: Yes (Life-Threatening, Other)
  Sender: TAKEDA
  Company Number: BR-TAKEDA-2025TUS047114

PATIENT
  Sex: Female
  Weight: 73 kg

DRUGS (4)
  1. DEXILANT [Suspect]
     Active Substance: DEXLANSOPRAZOLE
     Indication: Gastric ulcer
  2. ROSUVASTATIN [Concomitant]
     Active Substance: ROSUVASTATIN
     Indication: Blood cholesterol abnormal
  3. Dual [Concomitant]
     Indication: Fibromyalgia
  4. Deller [Concomitant]
     Indication: Fibromyalgia

REACTIONS (14)
  - Near death experience [Unknown]
  - Product use issue [Unknown]
  - Swelling face [Unknown]
  - Mouth swelling [Unknown]
  - Ear swelling [Unknown]
  - Sensation of foreign body [Unknown]
  - Swelling of nose [Unknown]
  - Eye swelling [Unknown]
  - Erythema [Unknown]
  - Dizziness [Unknown]
  - Headache [Unknown]
  - Pruritus [Unknown]
  - Hypersensitivity [Unknown]
  - Nausea [Unknown]
